FAERS Safety Report 11008293 (Version 1)
Quarter: 2015Q2

REPORT INFORMATION
  Report Type: Spontaneous
  Country: DE (occurrence: None)
  Receive Date: 20150408
  Receipt Date: 20150408
  Transmission Date: 20150821
  Serious: Yes (Death)
  Sender: FDA-Public Use
  Company Number: NSR_02034_2015

PATIENT
  Age: 43 Year
  Sex: Female

DRUGS (18)
  1. COCAINE (COCAINE) [Suspect]
     Active Substance: COCAINE
     Indication: PRODUCT USED FOR UNKNOWN INDICATION
     Dosage: DF, NOT THE PRESCRIBED AMOUNT
     Route: 042
  2. CODEINE [Suspect]
     Active Substance: CODEINE
     Indication: PRODUCT USED FOR UNKNOWN INDICATION
     Dosage: DF, NOT THE PRESCRIBED AMOUNT
     Route: 042
  3. ALCOHOL (ALCOHOL) [Suspect]
     Active Substance: ALCOHOL
     Indication: PRODUCT USED FOR UNKNOWN INDICATION
     Dosage: DF, NOT THE PRESCRIBED AMOUNT
     Route: 042
  4. DIAZEPAM (DIAZEPAM) [Concomitant]
     Active Substance: DIAZEPAM
     Indication: PRODUCT USED FOR UNKNOWN INDICATION
     Dosage: DF, NOT THE PRESCRIBED AMOUNT
     Route: 042
  5. PARACETAMOL (PARACETAMOL) [Suspect]
     Active Substance: ACETAMINOPHEN
     Indication: PRODUCT USED FOR UNKNOWN INDICATION
     Dosage: DF, NOT THE PRESCRIBED AMOUNT
     Route: 042
  6. METHADONE [Suspect]
     Active Substance: METHADONE HYDROCHLORIDE
     Indication: PRODUCT USED FOR UNKNOWN INDICATION
     Dosage: DF, NOT THE PRESCRIBED AMOUNT
     Route: 042
  7. HYDROXYZINE (HYDROXYZINE) [Suspect]
     Active Substance: HYDROXYZINE HYDROCHLORIDE
     Indication: PRODUCT USED FOR UNKNOWN INDICATION
     Dosage: DF,  NOT THE PRESCRIBED AMOUNT
     Route: 042
  8. 7-AMINOFLUNITRAZEPAM [Suspect]
     Active Substance: 7-AMINOFLUNITRAZEPAM
     Indication: PRODUCT USED FOR UNKNOWN INDICATION
     Dosage: DF, NOT THE PRESCRIBED AMOUNT, INTRAVENOUS (NOT OTHERWISE SPECIFIED)
     Route: 042
  9. MORPHINE (MORPHINE) [Suspect]
     Active Substance: MORPHINE
     Indication: PRODUCT USED FOR UNKNOWN INDICATION
     Dosage: DF, NOT THE PRESCRIBED AMOUNT
     Route: 042
  10. LEVAMISOLE [Suspect]
     Active Substance: LEVAMISOLE
     Indication: PRODUCT USED FOR UNKNOWN INDICATION
     Dosage: DF, NOT THE PRESCRIBED AMOUNT
     Route: 042
  11. COTININE [Suspect]
     Active Substance: COTININE
     Indication: PRODUCT USED FOR UNKNOWN INDICATION
     Dosage: DF, NOT THE PRESCRIBED AMOUNT
     Route: 042
  12. NAPROXEN (NAPROXEN) [Suspect]
     Active Substance: NAPROXEN
     Indication: PRODUCT USED FOR UNKNOWN INDICATION
     Dosage: DF, NOT THE PRESCRIBED AMOUNT
     Route: 042
  13. CAFFEINE (CAFFEINE) [Suspect]
     Active Substance: CAFFEINE
     Indication: PRODUCT USED FOR UNKNOWN INDICATION
     Dosage: DF, NOT THE PRESCRIBED AMOUNT
     Route: 042
  14. METHADONE [Suspect]
     Active Substance: METHADONE HYDROCHLORIDE
     Indication: PRODUCT USED FOR UNKNOWN INDICATION
     Dosage: DF, NOT THE PRESCRIBED AMOUNT
     Route: 042
  15. NORDAZEPAM [Suspect]
     Active Substance: NORDAZEPAM
     Indication: PRODUCT USED FOR UNKNOWN INDICATION
     Dosage: DF, NOT THE PRESCRIBED AMOUNT
     Route: 042
  16. BENZOYLECGONINE [Suspect]
     Active Substance: BENZOYLECGONINE
     Indication: PRODUCT USED FOR UNKNOWN INDICATION
     Dosage: DF, NOT THE PRESCRIBED AMOUNT
     Route: 042
  17. THEOPHYLLINE (THEOPHYLLINE) [Suspect]
     Active Substance: THEOPHYLLINE ANHYDROUS
     Indication: PRODUCT USED FOR UNKNOWN INDICATION
     Dosage: DF, NOT THE PRESCRIBED AMOUNT
     Route: 042
  18. THEOBROMINE [Suspect]
     Active Substance: THEOBROMINE
     Indication: PRODUCT USED FOR UNKNOWN INDICATION
     Dosage: DF, NOT THE PRESCRIBED AMOUNT
     Route: 042

REACTIONS (5)
  - Incorrect route of drug administration [None]
  - Accidental overdose [None]
  - Toxicity to various agents [None]
  - Accidental death [None]
  - Drug abuse [None]
